FAERS Safety Report 24906482 (Version 1)
Quarter: 2025Q1

REPORT INFORMATION
  Report Type: Spontaneous
  Country: CN (occurrence: CN)
  Receive Date: 20250130
  Receipt Date: 20250130
  Transmission Date: 20250409
  Serious: Yes (Hospitalization, Other)
  Sender: NOVARTIS
  Company Number: CN-002147023-NVSC2025CN014170

PATIENT
  Age: 68 Year
  Sex: Female
  Weight: 58.5 kg

DRUGS (1)
  1. TEGRETOL [Suspect]
     Active Substance: CARBAMAZEPINE
     Indication: Occipital neuralgia
     Dosage: 0.200 G, BID
     Route: 048
     Dates: start: 20250109, end: 20250115

REACTIONS (11)
  - Fall [Unknown]
  - Syncope [Unknown]
  - Glomerulonephritis chronic [Unknown]
  - Urinary tract infection [Unknown]
  - Chronic kidney disease [Unknown]
  - Lacunar infarction [Unknown]
  - Urinary incontinence [Unknown]
  - Asthenia [Unknown]
  - Paranasal sinus inflammation [Unknown]
  - Gallbladder polyp [Unknown]
  - Off label use [Unknown]

NARRATIVE: CASE EVENT DATE: 20250111
